FAERS Safety Report 7733134-4 (Version None)
Quarter: 2011Q3

REPORT INFORMATION
  Report Type: 
  Country: None (occurrence: None)
  Receive Date: 20110907
  Receipt Date: 20110905
  Transmission Date: 20111222
  Serious: Yes (Death, Other)
  Sender: FDA-Public Use
  Company Number: PHHY2011MX78860

PATIENT
  Sex: Female

DRUGS (4)
  1. DAFLON (DIOSMIN) [Concomitant]
     Dosage: UNK UKN, UNK
  2. LEVOTHYROXINE SODIUM [Concomitant]
     Dosage: 50 MG, UNK
  3. ZOLEDRONOC ACID [Suspect]
     Indication: OSTEOPOROSIS
     Dosage: 5 MG/100 ML
     Route: 042
     Dates: start: 20110105
  4. ESKAFLAM [Concomitant]
     Dosage: UNK UKN, UNK

REACTIONS (7)
  - PNEUMONIA [None]
  - RENAL FAILURE [None]
  - INFLUENZA [None]
  - CARDIAC ARREST [None]
  - BLOOD CREATININE INCREASED [None]
  - ABDOMINAL DISCOMFORT [None]
  - DYSPNOEA [None]
